FAERS Safety Report 4926541-6 (Version None)
Quarter: 2006Q1

REPORT INFORMATION
  Report Type: 
  Country: None (occurrence: None)
  Receive Date: 20060228
  Receipt Date: 20050427
  Transmission Date: 20060701
  Serious: No
  Sender: FDA-Public Use
  Company Number: US-GLAXOSMITHKLINE-A0556054A

PATIENT
  Age: 58 Year
  Sex: Female
  Weight: 59.1 kg

DRUGS (3)
  1. LAMICTAL [Suspect]
     Indication: BIPOLAR DISORDER
     Dosage: 100MG PER DAY
     Route: 048
     Dates: start: 20050302, end: 20050421
  2. ZOLOFT [Concomitant]
     Dosage: 100MG IN THE MORNING
     Route: 048
  3. TRAZODONE [Concomitant]
     Dosage: 50MG AT NIGHT

REACTIONS (1)
  - ERYTHEMA NODOSUM [None]
